FAERS Safety Report 7179135-9 (Version None)
Quarter: 2010Q4

REPORT INFORMATION
  Report Type: 
  Country: None (occurrence: None)
  Receive Date: 20101221
  Receipt Date: 20101217
  Transmission Date: 20110411
  Serious: No
  Sender: FDA-Public Use
  Company Number: US-PFIZER INC-2010174924

PATIENT
  Sex: Male

DRUGS (1)
  1. XANAX [Suspect]
     Indication: ANXIETY
     Dosage: UNK

REACTIONS (1)
  - PRODUCT LABEL ISSUE [None]
